FAERS Safety Report 12082477 (Version 1)
Quarter: 2016Q1

REPORT INFORMATION
  Report Type: Spontaneous
  Country: US (occurrence: US)
  Receive Date: 20160217
  Receipt Date: 20160217
  Transmission Date: 20160526
  Serious: Yes (Other)
  Sender: FDA-Public Use
  Company Number: US-CELGENEUS-USA-2016022837

PATIENT
  Sex: Male

DRUGS (16)
  1. THALOMID [Suspect]
     Active Substance: THALIDOMIDE
     Route: 048
     Dates: start: 201010
  2. THALOMID [Suspect]
     Active Substance: THALIDOMIDE
     Dosage: 100-50 MG
     Route: 048
     Dates: start: 200508
  3. THALOMID [Suspect]
     Active Substance: THALIDOMIDE
     Route: 048
     Dates: start: 200806
  4. THALOMID [Suspect]
     Active Substance: THALIDOMIDE
     Route: 048
     Dates: start: 201205
  5. THALOMID [Suspect]
     Active Substance: THALIDOMIDE
     Route: 048
     Dates: start: 201409
  6. THALOMID [Suspect]
     Active Substance: THALIDOMIDE
     Dosage: 50-100 MG
     Route: 048
     Dates: start: 200208
  7. THALOMID [Suspect]
     Active Substance: THALIDOMIDE
     Route: 048
     Dates: start: 200906
  8. THALOMID [Suspect]
     Active Substance: THALIDOMIDE
     Route: 048
     Dates: start: 201308
  9. THALOMID [Suspect]
     Active Substance: THALIDOMIDE
     Route: 048
     Dates: start: 201504
  10. THALOMID [Suspect]
     Active Substance: THALIDOMIDE
     Indication: APHTHOUS ULCER
     Route: 048
     Dates: start: 200204
  11. THALOMID [Suspect]
     Active Substance: THALIDOMIDE
     Route: 048
     Dates: start: 201403
  12. THALOMID [Suspect]
     Active Substance: THALIDOMIDE
     Route: 048
     Dates: start: 201005
  13. THALOMID [Suspect]
     Active Substance: THALIDOMIDE
     Route: 048
     Dates: start: 201105
  14. THALOMID [Suspect]
     Active Substance: THALIDOMIDE
     Route: 048
     Dates: start: 201304
  15. THALOMID [Suspect]
     Active Substance: THALIDOMIDE
     Route: 048
     Dates: start: 201501
  16. THALOMID [Suspect]
     Active Substance: THALIDOMIDE
     Route: 048
     Dates: start: 201602

REACTIONS (1)
  - Neuropathy peripheral [Unknown]
